FAERS Safety Report 26097396 (Version 2)
Quarter: 2025Q4

REPORT INFORMATION
  Report Type: Report from Study
  Country: US (occurrence: US)
  Receive Date: 20251127
  Receipt Date: 20251203
  Transmission Date: 20260117
  Serious: Yes (Other)
  Sender: ABBVIE
  Company Number: US-ABBVIE-6562984

PATIENT
  Age: 73 Year
  Sex: Female

DRUGS (1)
  1. SKYRIZI [Suspect]
     Active Substance: RISANKIZUMAB-RZAA
     Indication: Crohn^s disease
     Route: 058
     Dates: start: 202412

REACTIONS (11)
  - Cataract [Recovered/Resolved]
  - Blood pressure systolic increased [Unknown]
  - Headache [Not Recovered/Not Resolved]
  - Seasonal allergy [Unknown]
  - Upper respiratory tract infection [Recovering/Resolving]
  - Ear discomfort [Unknown]
  - Middle ear effusion [Not Recovered/Not Resolved]
  - Oropharyngeal pain [Unknown]
  - Respiratory tract congestion [Unknown]
  - Sinus disorder [Unknown]
  - Condition aggravated [Unknown]

NARRATIVE: CASE EVENT DATE: 20250601
